FAERS Safety Report 9705975 (Version 1)
Quarter: 2013Q4

REPORT INFORMATION
  Report Type: Spontaneous
  Country: TR (occurrence: TR)
  Receive Date: 20131122
  Receipt Date: 20131122
  Transmission Date: 20140711
  Serious: Yes (Hospitalization)
  Sender: FDA-Public Use
  Company Number: TR-GLAXOSMITHKLINE-B0947188A

PATIENT
  Age: 21 Year
  Sex: Female

DRUGS (2)
  1. PAROXETINE [Suspect]
     Indication: DEPRESSION
     Dosage: 30MG PER DAY
     Route: 065
  2. SERTRALINE [Suspect]
     Dosage: 50MG PER DAY
     Route: 065

REACTIONS (7)
  - Mania [Recovering/Resolving]
  - Hypomania [Unknown]
  - Logorrhoea [Unknown]
  - Psychomotor hyperactivity [Unknown]
  - Nervousness [Unknown]
  - Psychomotor hyperactivity [Unknown]
  - Irritability [Unknown]
